FAERS Safety Report 10152984 (Version 2)
Quarter: 2014Q2

REPORT INFORMATION
  Report Type: Spontaneous
  Country: JP (occurrence: JP)
  Receive Date: 20140505
  Receipt Date: 20140610
  Transmission Date: 20141212
  Serious: Yes (Other)
  Sender: FDA-Public Use
  Company Number: PHHY2014JP052626

PATIENT
  Age: 47 Year
  Sex: Female

DRUGS (5)
  1. ZOLEDRONATE [Suspect]
     Indication: MALIGNANT ASCITES
  2. PACLITAXEL [Suspect]
  3. IRINOTECAN [Suspect]
  4. CISPLATIN [Suspect]
  5. TEGAFUR [Suspect]

REACTIONS (7)
  - Hypocalcaemia [Unknown]
  - Metastases to bone [Unknown]
  - Metastases to lymph nodes [Unknown]
  - Metastases to ovary [Unknown]
  - Metastases to bladder [Unknown]
  - Metastases to skin [Unknown]
  - Malignant ascites [Unknown]
